FAERS Safety Report 5804138-3 (Version None)
Quarter: 2008Q3

REPORT INFORMATION
  Report Type: 
  Country: None (occurrence: None)
  Receive Date: 20080702
  Receipt Date: 20070723
  Transmission Date: 20090109
  Serious: Yes (Other)
  Sender: FDA-Public Use
  Company Number: HQWYE220125JUL07

PATIENT
  Age: 55 Year
  Sex: Female
  Weight: 69.01 kg

DRUGS (1)
  1. IBUPROFEN TABLETS [Suspect]
     Indication: HEADACHE
     Dosage: 1 OR 2 TABLETS DAILY, ORAL
     Route: 048
     Dates: start: 20070720, end: 20070721

REACTIONS (2)
  - EYE SWELLING [None]
  - URTICARIA [None]
